FAERS Safety Report 10155109 (Version 1)
Quarter: 2014Q2

REPORT INFORMATION
  Report Type: Spontaneous
  Country: IT (occurrence: IT)
  Receive Date: 20140506
  Receipt Date: 20140506
  Transmission Date: 20141212
  Serious: Yes (Other)
  Sender: FDA-Public Use
  Company Number: IT-WATSON-2014-09091

PATIENT
  Age: 56 Year
  Sex: Male

DRUGS (7)
  1. ISONIAZID [Suspect]
     Indication: TUBERCULOSIS
     Dosage: UNKNOWN
     Route: 065
  2. RIFAMPICIN [Concomitant]
     Indication: TUBERCULOSIS
     Dosage: UNKNOWN
     Route: 065
  3. ETHAMBUTOL [Interacting]
     Indication: TUBERCULOSIS
     Dosage: UNKNOWN
     Route: 065
  4. DELORAZEPAM [Concomitant]
     Indication: PROPHYLAXIS
     Route: 065
  5. FOLINIC ACID [Concomitant]
     Indication: ALCOHOL ABUSE
     Dosage: UNKNOWN
     Route: 065
  6. VITAMIN B12                        /00056201/ [Concomitant]
     Indication: ALCOHOL ABUSE
     Dosage: UNKNOWN
     Route: 065
  7. THIAMINE [Concomitant]
     Indication: ALCOHOL ABUSE
     Dosage: UNKNOWN
     Route: 065

REACTIONS (1)
  - Delirium [Recovered/Resolved]
